FAERS Safety Report 21484380 (Version 1)
Quarter: 2022Q4

REPORT INFORMATION
  Report Type: Spontaneous
  Country: CH (occurrence: CH)
  Receive Date: 20221020
  Receipt Date: 20221020
  Transmission Date: 20230113
  Serious: Yes (Hospitalization)
  Sender: FDA-Public Use
  Company Number: None

PATIENT
  Age: 72 Year
  Sex: Male

DRUGS (24)
  1. RASBURICASE [Suspect]
     Active Substance: RASBURICASE
     Dosage: 0.1 MG/KG, 1X
     Route: 041
     Dates: start: 2020
  2. RASBURICASE [Suspect]
     Active Substance: RASBURICASE
     Dosage: 0.09 MG/KG, 1X
     Route: 041
     Dates: start: 20220308, end: 20220308
  3. RASBURICASE [Suspect]
     Active Substance: RASBURICASE
     Dosage: 0.18 MG/KG, 1X
     Route: 041
     Dates: start: 20220309, end: 20220309
  4. RASBURICASE [Suspect]
     Active Substance: RASBURICASE
     Dosage: 0.27 MG/KG, 1X
     Route: 041
     Dates: start: 20220310, end: 20220310
  5. DEXAMETHASONE [Concomitant]
     Active Substance: DEXAMETHASONE
     Dosage: UNK
     Route: 065
  6. HEPARIN [Concomitant]
     Active Substance: HEPARIN SODIUM
     Dosage: UNK
     Route: 065
  7. ALLOPURINOL [Concomitant]
     Active Substance: ALLOPURINOL
     Dosage: 100 MG, QD
     Route: 048
     Dates: start: 20220302, end: 20220311
  8. APREPITANT [Concomitant]
     Active Substance: APREPITANT
     Dosage: UNK
  9. OLANZAPINE [Concomitant]
     Active Substance: OLANZAPINE
     Dosage: UNK
  10. TAMSULOSIN HYDROCHLORIDE [Concomitant]
     Active Substance: TAMSULOSIN HYDROCHLORIDE
     Dosage: UNK
  11. VALACYCLOVIR HYDROCHLORIDE [Concomitant]
     Active Substance: VALACYCLOVIR HYDROCHLORIDE
     Dosage: UNK
  12. MOMETASONE [Concomitant]
     Active Substance: MOMETASONE
     Dosage: UNK
  13. FLUTICASONE FUROATE\VILANTEROL TRIFENATATE [Concomitant]
     Active Substance: FLUTICASONE FUROATE\VILANTEROL TRIFENATATE
     Dosage: UNK
  14. CEFEPIME [Concomitant]
     Active Substance: CEFEPIME HYDROCHLORIDE
  15. ACETAMINOPHEN [Concomitant]
     Active Substance: ACETAMINOPHEN
  16. PICOSULFATE DE SODIUM [Concomitant]
     Dosage: UNK
  17. CYTARABINE [Concomitant]
     Active Substance: CYTARABINE
     Dosage: UNK
     Dates: start: 20220309
  18. DAUNORUBICIN [Concomitant]
     Active Substance: DAUNORUBICIN
     Dates: start: 20220309
  19. GILTERITINIB [Concomitant]
     Active Substance: GILTERITINIB
  20. FEBUXOSTAT [Concomitant]
     Active Substance: FEBUXOSTAT
     Dosage: 80 MG, QD
     Route: 048
     Dates: start: 20220311
  21. COLCHICINE [Concomitant]
     Active Substance: COLCHICINE
     Dosage: 0.5 MG, QD
     Route: 048
     Dates: start: 20220322, end: 20220324
  22. COLCHICINE [Concomitant]
     Active Substance: COLCHICINE
     Dosage: 0.5 MG, BID
     Route: 048
     Dates: start: 20220330, end: 20220522
  23. COLCHICINE [Concomitant]
     Active Substance: COLCHICINE
     Dosage: 0.5 MG, BID
     Route: 048
     Dates: start: 20220522, end: 20220720
  24. COLCHICINE [Concomitant]
     Active Substance: COLCHICINE
     Dosage: 0.5 MG, BID
     Route: 048
     Dates: start: 20220720

REACTIONS (2)
  - Hyperuricaemia [Recovered/Resolved]
  - Drug ineffective [Unknown]

NARRATIVE: CASE EVENT DATE: 20220301
